FAERS Safety Report 26080166 (Version 1)
Quarter: 2025Q4

REPORT INFORMATION
  Report Type: Spontaneous
  Country: US (occurrence: US)
  Receive Date: 20251124
  Receipt Date: 20251124
  Transmission Date: 20260117
  Serious: No
  Sender: ALKEM
  Company Number: US-ALKEM LABORATORIES LIMITED-US-ALKEM-2025-07684

PATIENT

DRUGS (6)
  1. ISONIAZID [Suspect]
     Active Substance: ISONIAZID
     Indication: Pulmonary tuberculosis
     Dosage: 1 DOSAGE FORM, QD (TABELT)
     Route: 065
  2. ISONIAZID [Suspect]
     Active Substance: ISONIAZID
     Dosage: UNK
     Route: 065
  3. MOXIFLOXACIN [Suspect]
     Active Substance: MOXIFLOXACIN
     Indication: Pulmonary tuberculosis
     Dosage: 1 DOSAGE FORM, QD (TABLET)
     Route: 065
  4. PYRAZINAMIDE [Suspect]
     Active Substance: PYRAZINAMIDE
     Indication: Pulmonary tuberculosis
     Dosage: UNK, QD
     Route: 065
  5. RIFAPENTINE [Suspect]
     Active Substance: RIFAPENTINE
     Indication: Pulmonary tuberculosis
     Dosage: 8 DOSAGE FORM, QD
     Route: 065
  6. PYRIDOXINE [Concomitant]
     Active Substance: PYRIDOXINE
     Indication: Pulmonary tuberculosis
     Dosage: 25 MG/DAY
     Route: 065

REACTIONS (1)
  - Rash pruritic [Unknown]
